FAERS Safety Report 7203834-3 (Version None)
Quarter: 2010Q4

REPORT INFORMATION
  Report Type: 
  Country: None (occurrence: None)
  Receive Date: 20101217
  Receipt Date: 20101124
  Transmission Date: 20110411
  Serious: No
  Sender: FDA-Public Use
  Company Number: 2010-01034

PATIENT
  Sex: Male

DRUGS (1)
  1. ALL ZICAM PRODUCTS [Suspect]

REACTIONS (2)
  - ANOSMIA [None]
  - DYSGEUSIA [None]
